FAERS Safety Report 4711743-4 (Version None)
Quarter: 2005Q3

REPORT INFORMATION
  Report Type: 
  Country: None (occurrence: None)
  Receive Date: 20050712
  Receipt Date: 20050628
  Transmission Date: 20060218
  Serious: Yes (Death)
  Sender: FDA-Public Use
  Company Number: JP-NOVOPROD-245152

PATIENT
  Age: 78 Year
  Sex: Male
  Weight: 68 kg

DRUGS (8)
  1. NOVORAPID 30 MIX CHU FLEXPEN [Suspect]
     Indication: INSULIN-REQUIRING TYPE II DIABETES MELLITUS
     Dosage: 44 IU, UNK
     Route: 058
     Dates: start: 20040401, end: 20040501
  2. DIGOXIN [Concomitant]
     Indication: ATRIAL FIBRILLATION
     Dosage: .125 MG, UNK
     Dates: start: 20031209, end: 20040501
  3. ASPIRIN [Concomitant]
     Indication: ATRIAL FIBRILLATION
     Dates: start: 20031209, end: 20040501
  4. ZYLORIC ^FRESENIUS^ [Concomitant]
     Indication: HYPERURICAEMIA
     Dates: start: 20031209, end: 20040501
  5. CHLORMADINONE ACETATE TAB [Concomitant]
     Indication: BENIGN PROSTATIC HYPERPLASIA
     Route: 048
     Dates: start: 20031209, end: 20040501
  6. WARFARIN [Concomitant]
     Indication: ATRIAL FIBRILLATION
     Dosage: 2.5 MG, UNK
     Route: 048
     Dates: end: 20040501
  7. DIART [Concomitant]
     Indication: ATRIAL FIBRILLATION
     Route: 048
     Dates: start: 20031209, end: 20040501
  8. AMARYL [Concomitant]
     Indication: INSULIN-REQUIRING TYPE II DIABETES MELLITUS
     Dosage: 1 MG, UNK
     Route: 048
     Dates: start: 20031209, end: 20040501

REACTIONS (3)
  - CARDIAC FAILURE ACUTE [None]
  - COMA [None]
  - VENTRICULAR FIBRILLATION [None]
